FAERS Safety Report 7815069-1 (Version None)
Quarter: 2011Q4

REPORT INFORMATION
  Report Type: 
  Country: None (occurrence: None)
  Receive Date: 20111014
  Receipt Date: 20111006
  Transmission Date: 20120403
  Serious: Yes (Hospitalization)
  Sender: FDA-Public Use
  Company Number: JP-ALEXION PHARMACEUTICALS INC.-A201101533

PATIENT
  Age: 77 Year
  Sex: Male

DRUGS (3)
  1. STEROID ANTIBACTERIALS [Concomitant]
     Dosage: UNK
  2. BLOOD TRANSFUSION, AUXILIARY PRODUCTS [Suspect]
  3. SOLIRIS [Suspect]
     Indication: PAROXYSMAL NOCTURNAL HAEMOGLOBINURIA
     Dosage: 900 MG Q2W
     Route: 042
     Dates: start: 20110114

REACTIONS (3)
  - TACHYCARDIA [None]
  - RENAL FAILURE [None]
  - CARDIAC FAILURE [None]
